FAERS Safety Report 21908899 (Version 5)
Quarter: 2024Q1

REPORT INFORMATION
  Report Type: Spontaneous
  Country: US (occurrence: US)
  Receive Date: 20230125
  Receipt Date: 20240125
  Transmission Date: 20240409
  Serious: Yes (Other)
  Sender: FDA-Public Use
  Company Number: US-PFIZER INC-PV202300015964

PATIENT
  Age: 62 Year
  Sex: Female

DRUGS (1)
  1. IBRANCE [Suspect]
     Active Substance: PALBOCICLIB
     Dosage: 125 MG
     Dates: start: 20230323

REACTIONS (6)
  - Cerebrovascular accident [Unknown]
  - Cataract [Unknown]
  - Somnolence [Unknown]
  - Malaise [Unknown]
  - Memory impairment [Unknown]
  - Loss of personal independence in daily activities [Unknown]
